FAERS Safety Report 8471740 (Version 4)
Quarter: 2014Q4

REPORT INFORMATION
  Report Type: Report from Study
  Country: DE (occurrence: DE)
  Receive Date: 20120322
  Receipt Date: 20141208
  Transmission Date: 20150529
  Serious: Yes (Hospitalization)
  Sender: FDA-Public Use
  Company Number: DE-ROCHE-1047447

PATIENT
  Age: 65 Year
  Sex: Male
  Weight: 84.6 kg

DRUGS (7)
  1. VEMURAFENIB [Suspect]
     Active Substance: VEMURAFENIB
     Indication: MALIGNANT MELANOMA
     Dosage: FORM: DRUGS
     Route: 048
     Dates: start: 20120201, end: 20120305
  2. DUAC [Concomitant]
     Active Substance: BENZOYL PEROXIDE\CLINDAMYCIN PHOSPHATE
     Route: 065
     Dates: start: 20120229, end: 20120307
  3. SODERM [Concomitant]
     Route: 065
     Dates: start: 20120229
  4. CAPTOPIRIL [Concomitant]
     Dosage: 100/50 /MG
     Route: 065
     Dates: start: 2005
  5. KALINOR [Concomitant]
     Active Substance: POTASSIUM CITRATE
     Route: 065
     Dates: start: 20120307, end: 20120309
  6. VEMURAFENIB [Suspect]
     Active Substance: VEMURAFENIB
     Route: 048
     Dates: start: 20120317
  7. ATENOLOL. [Concomitant]
     Active Substance: ATENOLOL
     Route: 065
     Dates: start: 2005

REACTIONS (1)
  - Dermatitis exfoliative [Recovered/Resolved]

NARRATIVE: CASE EVENT DATE: 20120305
